FAERS Safety Report 12798404 (Version 1)
Quarter: 2016Q3

REPORT INFORMATION
  Report Type: Spontaneous
  Country: FR (occurrence: FR)
  Receive Date: 20160930
  Receipt Date: 20160930
  Transmission Date: 20161109
  Serious: Yes (Hospitalization, Congenital Anomaly)
  Sender: FDA-Public Use
  Company Number: FR-JNJFOC-EMADSS2003000007

PATIENT
  Age: 0 Day
  Sex: Female
  Weight: .82 kg

DRUGS (4)
  1. LOXEN [Suspect]
     Active Substance: NICARDIPINE HYDROCHLORIDE
     Indication: PRODUCT USED FOR UNKNOWN INDICATION
     Route: 015
     Dates: start: 20011010, end: 20011024
  2. CORTANCYL [Suspect]
     Active Substance: PREDNISONE
     Indication: PRODUCT USED FOR UNKNOWN INDICATION
     Route: 015
     Dates: start: 20011010, end: 20011024
  3. GAVISCON [Suspect]
     Active Substance: ALUMINUM HYDROXIDE\MAGNESIUM CARBONATE
     Indication: PRODUCT USED FOR UNKNOWN INDICATION
     Route: 015
     Dates: start: 20011010, end: 20020413
  4. PREPULSID [Suspect]
     Active Substance: CISAPRIDE
     Indication: PRODUCT USED FOR UNKNOWN INDICATION
     Route: 015
     Dates: start: 20011010, end: 20011024

REACTIONS (5)
  - Atrial septal defect [Recovered/Resolved with Sequelae]
  - Necrotising colitis [Recovered/Resolved with Sequelae]
  - Congenital anomaly [Recovered/Resolved with Sequelae]
  - Pulmonary artery stenosis congenital [Recovered/Resolved with Sequelae]
  - Growth retardation [Recovered/Resolved with Sequelae]

NARRATIVE: CASE EVENT DATE: 20020413
